FAERS Safety Report 11821200 (Version 1)
Quarter: 2015Q4

REPORT INFORMATION
  Report Type: Spontaneous
  Country: US (occurrence: US)
  Receive Date: 20151210
  Receipt Date: 20151210
  Transmission Date: 20160305
  Serious: Yes (Death)
  Sender: FDA-Public Use
  Company Number: US-ASTRAZENECA-2015SF22354

PATIENT
  Age: 53 Year
  Sex: Male

DRUGS (8)
  1. VENLAFAXINE ER [Suspect]
     Active Substance: VENLAFAXINE HYDROCHLORIDE
     Route: 048
  2. ALPRAZOLAM. [Suspect]
     Active Substance: ALPRAZOLAM
     Route: 048
  3. CLONIDINE. [Suspect]
     Active Substance: CLONIDINE
     Route: 048
  4. QUETIAPINE FUMARATE. [Suspect]
     Active Substance: QUETIAPINE FUMARATE
     Route: 048
  5. AMLODIPINE/BENAZEPRIL [Suspect]
     Active Substance: AMLODIPINE BESYLATE\BENAZEPRIL HYDROCHLORIDE
     Route: 048
  6. ETHANOL [Suspect]
     Active Substance: ALCOHOL
     Route: 048
  7. ZOLPIDEM [Suspect]
     Active Substance: ZOLPIDEM\ZOLPIDEM TARTRATE
     Route: 048
  8. POTASSIUM CHLORIDE. [Suspect]
     Active Substance: POTASSIUM CHLORIDE
     Route: 048

REACTIONS (2)
  - Completed suicide [Fatal]
  - Toxicity to various agents [Fatal]
